FAERS Safety Report 5168012-0 (Version None)
Quarter: 2006Q4

REPORT INFORMATION
  Report Type: 
  Country: None (occurrence: None)
  Receive Date: 20061208
  Receipt Date: 20060209
  Transmission Date: 20070319
  Serious: No
  Sender: FDA-Public Use
  Company Number: US-GLAXOSMITHKLINE-A0593085A

PATIENT
  Age: 79 Year
  Sex: Female

DRUGS (15)
  1. AVANDAMET [Suspect]
     Dosage: 1TAB TWICE PER DAY
     Route: 048
  2. HUMULIN 50/50 [Concomitant]
  3. HYDROCHLOROTHIAZIDE [Concomitant]
  4. NOVOLIN [Concomitant]
  5. OXYBUTYNIN CHLORIDE [Concomitant]
  6. PAROXETINE HCL [Concomitant]
  7. NEXIUM [Concomitant]
  8. ARTHRITIS EASE [Concomitant]
  9. ACETAMINOPHEN [Concomitant]
  10. CALCIUM WITH VITAMIN D [Concomitant]
  11. GLUCOSAMINE [Concomitant]
  12. OMEGA 3 [Concomitant]
  13. ACTONEL [Concomitant]
  14. UNSPECIFIED MEDICATION [Concomitant]
  15. LISINOPRIL [Concomitant]

REACTIONS (7)
  - ASTHENIA [None]
  - CONSTIPATION [None]
  - DIZZINESS [None]
  - NAUSEA [None]
  - NIGHT SWEATS [None]
  - SOMNOLENCE [None]
  - WEIGHT INCREASED [None]
